FAERS Safety Report 14522992 (Version 1)
Quarter: 2018Q1

REPORT INFORMATION
  Report Type: Spontaneous
  Country: FR (occurrence: FR)
  Receive Date: 20180212
  Receipt Date: 20180212
  Transmission Date: 20180509
  Serious: Yes (Death, Other)
  Sender: FDA-Public Use
  Company Number: FR-GLAXOSMITHKLINE-FR2018021283

PATIENT
  Age: 77 Year
  Sex: Male
  Weight: 99 kg

DRUGS (2)
  1. CALCIPARINE [Suspect]
     Active Substance: HEPARIN CALCIUM
     Indication: ATRIAL FIBRILLATION
     Dosage: UNK
     Route: 058
  2. VOLTARENE (DICLOFENAC SODIUM) [Suspect]
     Active Substance: DICLOFENAC SODIUM
     Indication: PRODUCT USED FOR UNKNOWN INDICATION
     Dosage: UNK
     Route: 048

REACTIONS (1)
  - Shock haemorrhagic [Fatal]

NARRATIVE: CASE EVENT DATE: 20170910
